FAERS Safety Report 19864877 (Version 3)
Quarter: 2021Q4

REPORT INFORMATION
  Report Type: Spontaneous
  Country: US (occurrence: US)
  Receive Date: 20210922
  Receipt Date: 20211016
  Transmission Date: 20220303
  Serious: No
  Sender: FDA-Public Use
  Company Number: US-009507513-2109USA002657

PATIENT
  Age: 51 Year
  Sex: Male

DRUGS (3)
  1. BELSOMRA [Suspect]
     Active Substance: SUVOREXANT
     Dosage: 10 MILLIGRAM  (1 TABLET), EVERY NIGHT
     Route: 048
  2. BELSOMRA [Suspect]
     Active Substance: SUVOREXANT
     Dosage: 10 MILLIGRAM  (1 TABLET), EVERY NIGHT
     Route: 048
     Dates: start: 20210902
  3. BELSOMRA [Suspect]
     Active Substance: SUVOREXANT
     Dosage: 15 MILLIGRAM, QPM
     Route: 048
     Dates: start: 2021

REACTIONS (5)
  - Drug ineffective [Unknown]
  - Product packaging quantity issue [Unknown]
  - Poor quality product administered [Unknown]
  - Product packaging issue [Unknown]
  - Product packaging quantity issue [Unknown]

NARRATIVE: CASE EVENT DATE: 20210901
